FAERS Safety Report 9225083 (Version 2)
Quarter: 2013Q2

REPORT INFORMATION
  Report Type: Spontaneous
  Country: US (occurrence: US)
  Receive Date: 20130411
  Receipt Date: 20130411
  Transmission Date: 20140414
  Serious: Yes (Hospitalization)
  Sender: FDA-Public Use
  Company Number: US-MYLANLABS-2013S1007074

PATIENT
  Age: 78 Year
  Sex: Female
  Weight: 92.53 kg

DRUGS (17)
  1. LYRICA [Suspect]
     Indication: NERVE INJURY
  2. NEURONTIN [Suspect]
     Indication: NERVE INJURY
  3. TRIAMTERENE AND HYDROCHLOROTHIAZIDE TABLETS, USP [Suspect]
     Indication: BLOOD PRESSURE INCREASED
     Dates: end: 20130301
  4. TRIAMTERENE AND HYDROCHLOROTHIAZIDE TABLETS, USP [Suspect]
     Indication: BLOOD PRESSURE INCREASED
     Dates: start: 20130305
  5. LISINOPRIL [Suspect]
     Indication: BLOOD PRESSURE INCREASED
     Dates: end: 20130301
  6. LISINOPRIL [Suspect]
     Indication: BLOOD PRESSURE INCREASED
     Dates: start: 20130305
  7. CELEBREX [Suspect]
     Indication: ARTHRITIS
     Dates: start: 2001
  8. CALCIUM [Concomitant]
  9. DOXEPIN HYDROCHLORIDE [Concomitant]
  10. SIMVASTATIN [Concomitant]
     Indication: BLOOD CHOLESTEROL ABNORMAL
  11. VITAMIN D3 [Concomitant]
  12. FLUOXETINE [Concomitant]
  13. SOLIFENACIN SUCCINATE [Concomitant]
  14. MONTELUKAST SODIUM [Concomitant]
     Indication: CHRONIC OBSTRUCTIVE PULMONARY DISEASE
  15. TIOTROPIUM BROMIDE [Concomitant]
     Indication: CHRONIC OBSTRUCTIVE PULMONARY DISEASE
  16. FLUTICASONE PROPIONATE W/SALMETEROL XINAFOATE [Concomitant]
     Indication: CHRONIC OBSTRUCTIVE PULMONARY DISEASE
  17. CELECOXIB [Concomitant]

REACTIONS (6)
  - Abasia [Recovered/Resolved]
  - Fall [Recovered/Resolved]
  - Pneumonia [Recovered/Resolved]
  - Cystitis [Recovered/Resolved]
  - Dehydration [Recovered/Resolved]
  - Hypotension [Recovered/Resolved]
